FAERS Safety Report 10142064 (Version 1)
Quarter: 2014Q2

REPORT INFORMATION
  Report Type: Spontaneous
  Country: US (occurrence: US)
  Receive Date: 20140429
  Receipt Date: 20140429
  Transmission Date: 20141212
  Serious: No
  Sender: FDA-Public Use
  Company Number: US-TEVA-477272USA

PATIENT
  Sex: Female
  Weight: 49.94 kg

DRUGS (2)
  1. AZILECT [Suspect]
     Indication: PARKINSON^S DISEASE
     Route: 048
  2. CARBIDOPA W/LEVODOPA [Concomitant]
     Indication: PARKINSON^S DISEASE

REACTIONS (2)
  - Nausea [Not Recovered/Not Resolved]
  - Memory impairment [Unknown]
